FAERS Safety Report 21222043 (Version 6)
Quarter: 2022Q4

REPORT INFORMATION
  Report Type: Report from Study
  Country: DE (occurrence: DE)
  Receive Date: 20220817
  Receipt Date: 20221028
  Transmission Date: 20230113
  Serious: Yes (Hospitalization, Other)
  Sender: FDA-Public Use
  Company Number: DE-CELLTRION INC.-2022DE012949

PATIENT

DRUGS (4)
  1. INFLIXIMAB [Suspect]
     Active Substance: INFLIXIMAB
     Indication: Colitis ulcerative
     Dosage: 925 MG, EVERY 14 DAYS
     Route: 042
     Dates: start: 20220530
  2. INFLIXIMAB [Suspect]
     Active Substance: INFLIXIMAB
     Dosage: 925 MG
     Route: 042
     Dates: start: 20220614
  3. PENTASA [Suspect]
     Active Substance: MESALAMINE
     Indication: Colitis ulcerative
     Dosage: 1000 MG, 2-3X/WEEK
     Dates: start: 20200810
  4. MESALAMINE [Concomitant]
     Active Substance: MESALAMINE
     Indication: Colitis ulcerative
     Dosage: 1200 MG, 2-0-0
     Dates: start: 20210128

REACTIONS (6)
  - Nephrolithiasis [Recovered/Resolved]
  - Calculus urinary [Recovering/Resolving]
  - Ureteroneocystostomy [Recovering/Resolving]
  - Splint application [Recovering/Resolving]
  - Abdominal pain [Recovering/Resolving]
  - Overdose [Unknown]

NARRATIVE: CASE EVENT DATE: 20220728
